FAERS Safety Report 13691936 (Version 1)
Quarter: 2017Q2

REPORT INFORMATION
  Report Type: Spontaneous
  Country: US (occurrence: US)
  Receive Date: 20170626
  Receipt Date: 20170626
  Transmission Date: 20170830
  Serious: No
  Sender: FDA-Public Use
  Company Number: US-BRACCO-013669

PATIENT
  Age: 52 Year
  Sex: Female

DRUGS (4)
  1. MULTIHANCE [Suspect]
     Active Substance: GADOBENATE DIMEGLUMINE
     Indication: NUCLEAR MAGNETIC RESONANCE IMAGING BRAIN
     Dosage: LEFT ANTECUBITAL
     Route: 042
     Dates: start: 20160609, end: 20160609
  2. ALEVE [Concomitant]
     Active Substance: NAPROXEN SODIUM
  3. ADVIL [Concomitant]
     Active Substance: IBUPROFEN
  4. SOMATULINE [Concomitant]
     Active Substance: LANREOTIDE ACETATE

REACTIONS (4)
  - Pruritus [Not Recovered/Not Resolved]
  - Extravasation [Not Recovered/Not Resolved]
  - Burning sensation [Not Recovered/Not Resolved]
  - Arthralgia [Not Recovered/Not Resolved]

NARRATIVE: CASE EVENT DATE: 20160609
